FAERS Safety Report 4695747-6 (Version None)
Quarter: 2005Q2

REPORT INFORMATION
  Report Type: 
  Country: None (occurrence: None)
  Receive Date: 20050616
  Receipt Date: 20050616
  Transmission Date: 20051028
  Serious: Yes (Life-Threatening, Disabling)
  Sender: FDA-Public Use
  Company Number: None

PATIENT
  Sex: Female
  Weight: 98.8842 kg

DRUGS (3)
  1. SEROQUEL [Suspect]
     Indication: SCHIZOPHRENIA
     Dosage: 612 MGS
  2. BENZTROPINE [Suspect]
  3. HALOPERIDOL [Suspect]
     Indication: SCHIZOPHRENIA

REACTIONS (1)
  - HALLUCINATIONS, MIXED [None]
